FAERS Safety Report 4863828-X (Version None)
Quarter: 2005Q4

REPORT INFORMATION
  Report Type: 
  Country: None (occurrence: None)
  Receive Date: 20051222
  Receipt Date: 20050930
  Transmission Date: 20060501
  Serious: No
  Sender: FDA-Public Use
  Company Number: US-GLAXOSMITHKLINE-A0576626A

PATIENT
  Sex: Male

DRUGS (2)
  1. FLONASE [Suspect]
     Indication: DRUG USE FOR UNKNOWN INDICATION
     Route: 045
     Dates: start: 20050924, end: 20050929
  2. LORATADINE [Concomitant]

REACTIONS (3)
  - EYE PRURITUS [None]
  - PHARYNGEAL OEDEMA [None]
  - URTICARIA [None]
